FAERS Safety Report 7930895-6 (Version None)
Quarter: 2011Q4

REPORT INFORMATION
  Report Type: 
  Country: None (occurrence: None)
  Receive Date: 20111121
  Receipt Date: 20111011
  Transmission Date: 20120403
  Serious: Yes (Hospitalization)
  Sender: FDA-Public Use
  Company Number: PHHY2011TW13729

PATIENT
  Sex: Female

DRUGS (2)
  1. TASIGNA [Suspect]
     Indication: CHRONIC MYELOID LEUKAEMIA
     Dosage: 800 MG, DAILY
     Route: 048
  2. SPRYCEL [Suspect]

REACTIONS (7)
  - WHITE BLOOD CELL COUNT INCREASED [None]
  - DRY SKIN [None]
  - DYSPHONIA [None]
  - BONE PAIN [None]
  - NASOPHARYNGITIS [None]
  - DRUG INEFFECTIVE [None]
  - ABDOMINAL PAIN UPPER [None]
